FAERS Safety Report 20711771 (Version 1)
Quarter: 2022Q2

REPORT INFORMATION
  Report Type: Spontaneous
  Country: US (occurrence: US)
  Receive Date: 20220414
  Receipt Date: 20220414
  Transmission Date: 20220721
  Serious: No
  Sender: FDA-Public Use
  Company Number: US-PFIZER INC-202101022084

PATIENT
  Age: 65 Year
  Sex: Male

DRUGS (2)
  1. CHANTIX [Suspect]
     Active Substance: VARENICLINE TARTRATE
     Dosage: 1 MG, DAILY
  2. ONDANSETRON [Concomitant]
     Active Substance: ONDANSETRON
     Dosage: 0.5 MG, DAILY

REACTIONS (1)
  - Nausea [Unknown]
